FAERS Safety Report 7729037-1 (Version None)
Quarter: 2011Q3

REPORT INFORMATION
  Report Type: 
  Country: None (occurrence: None)
  Receive Date: 20110906
  Receipt Date: 20110901
  Transmission Date: 20111222
  Serious: Yes (Other)
  Sender: FDA-Public Use
  Company Number: RU-BRISTOL-MYERS SQUIBB COMPANY-15892789

PATIENT
  Age: 30 Year
  Sex: Male

DRUGS (2)
  1. METHYLPREDNISOLONE [Concomitant]
     Dosage: STARTED MORE THAN 5 YEARS AGO
     Route: 048
  2. ENTECAVIR [Suspect]
     Indication: HEPATITIS B
     Route: 048
     Dates: start: 20110316, end: 20110709

REACTIONS (1)
  - MYASTHENIA GRAVIS CRISIS [None]
